FAERS Safety Report 24303622 (Version 1)
Quarter: 2024Q3

REPORT INFORMATION
  Report Type: Spontaneous
  Country: CR (occurrence: CR)
  Receive Date: 20240910
  Receipt Date: 20240910
  Transmission Date: 20241017
  Serious: Yes (Other)
  Sender: PFIZER
  Company Number: CR-PFIZER INC-PV202400077182

PATIENT
  Age: 82 Year
  Sex: Male

DRUGS (1)
  1. SUTENT [Suspect]
     Active Substance: SUNITINIB MALATE
     Dosage: 2 WEEKS ON AND 1 WEEK OFF
     Dates: start: 202310

REACTIONS (9)
  - Salmonellosis [Unknown]
  - Skin exfoliation [Unknown]
  - Decreased appetite [Unknown]
  - Food intolerance [Unknown]
  - Diarrhoea [Unknown]
  - Dry skin [Unknown]
  - Erythema [Unknown]
  - Stomatitis [Recovering/Resolving]
  - Flatulence [Unknown]

NARRATIVE: CASE EVENT DATE: 20231001
